FAERS Safety Report 24443005 (Version 4)
Quarter: 2025Q1

REPORT INFORMATION
  Report Type: Spontaneous
  Country: US (occurrence: US)
  Receive Date: 20241016
  Receipt Date: 20250129
  Transmission Date: 20250409
  Serious: No
  Sender: ROCHE
  Company Number: US-ROCHE-3574905

PATIENT
  Age: 48 Year
  Sex: Male

DRUGS (3)
  1. HEMLIBRA [Suspect]
     Active Substance: EMICIZUMAB-KXWH
     Indication: Factor VIII deficiency
     Dosage: YES
     Route: 058
     Dates: start: 202311
  2. HEMLIBRA [Suspect]
     Active Substance: EMICIZUMAB-KXWH
     Route: 058
     Dates: start: 202311
  3. HEMLIBRA [Suspect]
     Active Substance: EMICIZUMAB-KXWH
     Route: 058
     Dates: start: 202410

REACTIONS (7)
  - Haemorrhage [Unknown]
  - Fall [Unknown]
  - Joint injury [Unknown]
  - Arthropathy [Unknown]
  - Contusion [Unknown]
  - Tooth socket haemorrhage [Unknown]
  - Joint injury [Unknown]

NARRATIVE: CASE EVENT DATE: 20241128
